FAERS Safety Report 6481248-1 (Version None)
Quarter: 2009Q4

REPORT INFORMATION
  Report Type: 
  Country: None (occurrence: None)
  Receive Date: 20091208
  Receipt Date: 20091201
  Transmission Date: 20100525
  Serious: Yes (Life-Threatening, Disabling, Other)
  Sender: FDA-Public Use
  Company Number: A0808478A

PATIENT
  Age: 64 Year
  Sex: Female

DRUGS (11)
  1. LAMICTAL [Suspect]
     Indication: BIPOLAR DISORDER
     Dosage: 100MG PER DAY
     Route: 048
     Dates: start: 20090806, end: 20090910
  2. SYNTHROID [Concomitant]
  3. ROCALTROL [Concomitant]
  4. LEXAPRO [Concomitant]
     Dosage: 20U PER DAY
     Route: 048
  5. WELLBUTRIN SR [Concomitant]
     Dosage: 150U PER DAY
     Route: 048
  6. ZYPREXA [Concomitant]
     Dosage: .25TAB UNKNOWN
     Route: 048
  7. CLONAZEPAM [Concomitant]
  8. INHALERS [Concomitant]
  9. ANTIBIOTICS [Concomitant]
  10. SUCRALFATE [Concomitant]
  11. PHENERGAN HCL [Concomitant]

REACTIONS (11)
  - AGITATION [None]
  - ANXIETY [None]
  - EYE DISCHARGE [None]
  - FEAR [None]
  - HYPERSENSITIVITY [None]
  - INFLUENZA LIKE ILLNESS [None]
  - LYMPHADENOPATHY [None]
  - NAUSEA [None]
  - PANIC REACTION [None]
  - TONGUE BLISTERING [None]
  - VOMITING [None]
